FAERS Safety Report 18579530 (Version 1)
Quarter: 2020Q4

REPORT INFORMATION
  Report Type: Report from Study
  Country: None (occurrence: US)
  Receive Date: 20201204
  Receipt Date: 20201204
  Transmission Date: 20210114
  Serious: Yes (Death, Hospitalization, Other)
  Sender: FDA-Public Use
  Company Number: US-ABBVIE-19K-163-3146701-00

PATIENT
  Sex: Male

DRUGS (5)
  1. IMBRUVICA [Suspect]
     Active Substance: IBRUTINIB
     Indication: MANTLE CELL LYMPHOMA
     Dosage: 560 MG, QD
     Route: 048
     Dates: start: 201903
  2. VENCLEXTA [Suspect]
     Active Substance: VENETOCLAX
     Indication: MANTLE CELL LYMPHOMA
     Route: 048
     Dates: start: 20190501, end: 2019
  3. IMBRUVICA [Suspect]
     Active Substance: IBRUTINIB
     Dosage: 560 MG, QD
     Route: 048
     Dates: start: 20190603
  4. IMBRUVICA [Suspect]
     Active Substance: IBRUTINIB
     Dosage: 560 MG, QD
     Route: 048
     Dates: start: 20190504
  5. VENCLEXTA [Suspect]
     Active Substance: VENETOCLAX
     Route: 048
     Dates: start: 2019

REACTIONS (6)
  - Hospitalisation [Not Recovered/Not Resolved]
  - Platelet count decreased [Unknown]
  - Death [Fatal]
  - Arrhythmia [Unknown]
  - Somnolence [Unknown]
  - Cerebrovascular accident [Unknown]

NARRATIVE: CASE EVENT DATE: 2019
